FAERS Safety Report 7689892-0 (Version None)
Quarter: 2011Q3

REPORT INFORMATION
  Report Type: 
  Country: None (occurrence: None)
  Receive Date: 20110818
  Receipt Date: 20110809
  Transmission Date: 20111222
  Serious: No
  Sender: FDA-Public Use
  Company Number: US-BIOGENIDEC-2011BI012135

PATIENT
  Sex: Female

DRUGS (1)
  1. TYSABRI [Suspect]
     Indication: MULTIPLE SCLEROSIS
     Route: 042
     Dates: start: 20110324, end: 20110421

REACTIONS (10)
  - DYSPNOEA [None]
  - PARAESTHESIA [None]
  - FLUSHING [None]
  - HYPERSENSITIVITY [None]
  - PAIN IN EXTREMITY [None]
  - FATIGUE [None]
  - FEELING ABNORMAL [None]
  - MEMORY IMPAIRMENT [None]
  - FEELING HOT [None]
  - HYPOAESTHESIA [None]
